FAERS Safety Report 9468035 (Version 3)
Quarter: 2013Q4

REPORT INFORMATION
  Report Type: Spontaneous
  Country: US (occurrence: US)
  Receive Date: 20130821
  Receipt Date: 20131007
  Transmission Date: 20140711
  Serious: Yes (Hospitalization, Other)
  Sender: FDA-Public Use
  Company Number: US-PFIZER INC-2013241701

PATIENT
  Age: 67 Year
  Sex: Female
  Weight: 68.75 kg

DRUGS (20)
  1. LYRICA [Suspect]
     Indication: FIBROMYALGIA
     Dosage: 25 MG, 2X/DAY
     Route: 048
  2. HYDROCHLOROTHIAZIDE [Concomitant]
     Indication: HYPERTENSION
     Dosage: 12.5 MG, 1X/DAY
  3. ATENOLOL [Concomitant]
     Dosage: 12.5 MG, 1X/DAY
  4. ASPIRIN [Concomitant]
     Dosage: 81 MG, 1X/DAY
  5. PLAVIX [Concomitant]
     Indication: CORONARY ARTERY DISEASE
     Dosage: 75 MG, 1X/DAY
  6. LEVOXYL [Concomitant]
     Dosage: 100 MG, 1X/DAY
  7. NEXIUM [Concomitant]
     Dosage: 40 MG, 1X/DAY
  8. NIASPAN [Concomitant]
     Dosage: 1000 MG, 1X/DAY
  9. PAXIL [Concomitant]
     Dosage: 12.5 MG, 1X/DAY
  10. ATACAND [Concomitant]
     Indication: HYPERTENSION
     Dosage: 32 MG, 1X/DAY
  11. PRAVASTATIN [Concomitant]
     Dosage: 40 MG, 2X/DAY
  12. PRAVASTATIN [Concomitant]
     Dosage: 80 MG, 1X/DAY (AT BEDTIME)
  13. CALCIUM [Concomitant]
     Dosage: 1000 MG, 1X/DAY
  14. VITAMIN D [Concomitant]
     Dosage: 1000 MG, 1X/DAY
  15. VITAMIN D [Concomitant]
     Dosage: 1000 IU, 1X/DAY
  16. VITAMIN B12 [Concomitant]
     Dosage: 500 MG, 1X/DAY
  17. VITAMIN B12 [Concomitant]
     Dosage: 500 UG, 1X/DAY
     Route: 048
  18. LISINOPRIL [Concomitant]
     Indication: HYPERTENSION
     Dosage: UNK
  19. ASA [Concomitant]
     Dosage: 81 MG, 1X/DAY
  20. FISH OIL [Concomitant]
     Dosage: 1200 MG, 1X/DAY

REACTIONS (13)
  - Cerebral haemorrhage [Unknown]
  - Fall [Unknown]
  - Face injury [Unknown]
  - Heart rate decreased [Unknown]
  - Fractured coccyx [Unknown]
  - Type IIa hyperlipidaemia [Unknown]
  - Hyperlipidaemia [Unknown]
  - Cough [Unknown]
  - Paranasal sinus hypersecretion [Unknown]
  - Insulin resistance [Unknown]
  - Anxiety [Unknown]
  - Weight decreased [Unknown]
  - Neck mass [Unknown]
